FAERS Safety Report 4327575-5 (Version None)
Quarter: 2004Q1

REPORT INFORMATION
  Report Type: 
  Country: None (occurrence: None)
  Receive Date: 20040325
  Receipt Date: 20040312
  Transmission Date: 20041129
  Serious: Yes (Death)
  Sender: FDA-Public Use
  Company Number: 04P-107-0253564-00

PATIENT
  Sex: Male

DRUGS (4)
  1. SEVORANE (ULTANE LIQUID FOR INHALATION) (SEVOFLURANE) [Suspect]
     Dates: start: 20040207
  2. PROPOFOL [Concomitant]
  3. FUROSEMIDE [Concomitant]
  4. PANCURONIC [Concomitant]

REACTIONS (3)
  - ANAESTHETIC COMPLICATION [None]
  - HEPATIC NECROSIS [None]
  - HYPOXIA [None]
